FAERS Safety Report 12391297 (Version 2)
Quarter: 2016Q3

REPORT INFORMATION
  Report Type: Spontaneous
  Country: FR (occurrence: FR)
  Receive Date: 20160520
  Receipt Date: 20160709
  Transmission Date: 20161109
  Serious: Yes (Hospitalization, Other)
  Sender: FDA-Public Use
  Company Number: FR-BRISTOL-MYERS SQUIBB COMPANY-BMS-2016-038635

PATIENT
  Age: 79 Year
  Sex: Male

DRUGS (8)
  1. ELIQUIS [Suspect]
     Active Substance: APIXABAN
     Indication: PHLEBITIS
     Dosage: 5 MG, BID
     Route: 048
     Dates: end: 20160418
  2. ZOCOR [Concomitant]
     Active Substance: SIMVASTATIN
     Indication: PRODUCT USED FOR UNKNOWN INDICATION
     Dosage: 20 MG, QD
     Route: 065
  3. METFORMIN [Concomitant]
     Active Substance: METFORMIN HYDROCHLORIDE
     Indication: PRODUCT USED FOR UNKNOWN INDICATION
     Dosage: 1000 MG, QD
     Route: 065
  4. LASILIX                            /00032601/ [Concomitant]
     Active Substance: FUROSEMIDE
     Indication: PRODUCT USED FOR UNKNOWN INDICATION
     Dosage: 40 MG, QD
     Route: 065
  5. CORDARONE [Concomitant]
     Active Substance: AMIODARONE HYDROCHLORIDE
     Indication: PRODUCT USED FOR UNKNOWN INDICATION
     Dosage: 200 MG, QD
     Route: 065
  6. ELIQUIS [Suspect]
     Active Substance: APIXABAN
     Indication: CEREBROVASCULAR ACCIDENT PROPHYLAXIS
     Dosage: 2.5 MG, UNK
     Route: 048
     Dates: start: 20160425
  7. ALDACTONE [Concomitant]
     Active Substance: SPIRONOLACTONE
     Indication: PRODUCT USED FOR UNKNOWN INDICATION
     Dosage: 12.5 MG, QD
     Route: 065
  8. XENETIX [Suspect]
     Active Substance: IOBITRIDOL
     Indication: COMPUTERISED TOMOGRAM
     Dosage: 110 MG/ML, UNK
     Route: 065
     Dates: start: 20160422

REACTIONS (7)
  - Renal failure [Not Recovered/Not Resolved]
  - Post procedural haematoma [Not Recovered/Not Resolved]
  - Angiosarcoma [Unknown]
  - Haemorrhagic anaemia [Not Recovered/Not Resolved]
  - Renal tubular necrosis [Recovered/Resolved]
  - Drug level increased [Recovered/Resolved]
  - Transfusion [Unknown]

NARRATIVE: CASE EVENT DATE: 20160426
